FAERS Safety Report 8831461 (Version 1)
Quarter: 2012Q4

REPORT INFORMATION
  Report Type: 
  Country: US (occurrence: US)
  Receive Date: 20121008
  Receipt Date: 20121008
  Transmission Date: 20130627
  Serious: Yes (Hospitalization)
  Sender: FDA-Public Use
  Company Number: US-GLAXOSMITHKLINE-A0964106A

PATIENT
  Age: 16 Year
  Sex: Male

DRUGS (7)
  1. LAMICTAL [Suspect]
     Indication: PRODUCT USED FOR UNKNOWN INDICATION
     Dosage: 500MG Per day
     Route: 065
  2. LAMOTRIGINE [Suspect]
     Indication: CONVULSION
     Dosage: 100MG Variable dose
     Route: 048
  3. VIMPAT [Suspect]
     Indication: PRODUCT USED FOR UNKNOWN INDICATION
     Dosage: 300MG See dosage text
     Dates: end: 20120106
  4. LAMICTAL XR [Suspect]
     Indication: CONVULSION
     Dosage: 300MG Twice per day
     Route: 048
     Dates: start: 2011
  5. TEGRETOL XR [Suspect]
     Indication: CONVULSION
     Dosage: 600MG Twice per day
     Route: 048
     Dates: start: 201112
  6. ZOLOFT [Concomitant]
  7. KLONOPIN [Concomitant]

REACTIONS (7)
  - Convulsion [Unknown]
  - Dizziness [Recovered/Resolved]
  - Fatigue [Recovered/Resolved]
  - Vomiting [Recovering/Resolving]
  - Abnormal behaviour [Unknown]
  - Drug ineffective [Unknown]
  - Drug interaction [Unknown]
